FAERS Safety Report 5682951-3 (Version None)
Quarter: 2008Q1

REPORT INFORMATION
  Report Type: 
  Country: None (occurrence: None)
  Receive Date: 20080327
  Receipt Date: 20080128
  Transmission Date: 20080703
  Serious: Yes (Death)
  Sender: FDA-Public Use
  Company Number: US-TYCO HEALTHCARE/MALLINCKRODT-T200800488

PATIENT

DRUGS (10)
  1. BUTALBITAL ACETAMINOPHEN AND CAFFEINE [Suspect]
     Route: 048
  2. QUETIAPINE FUMARATE [Suspect]
     Route: 048
  3. ANGIOTENSIN RECEPTOR BLOCKER [Suspect]
     Route: 048
  4. ASPIRIN [Suspect]
     Route: 048
  5. ACETAMINOPHEN [Suspect]
     Route: 048
  6. IBUPROFEN [Suspect]
     Route: 048
  7. ESCITALOPRAM OXALATE [Suspect]
     Route: 048
  8. CAFFEINE CITRATE [Suspect]
     Route: 048
  9. NAPROXEN [Suspect]
     Route: 048
  10. FEXOFENADINE [Suspect]
     Route: 048

REACTIONS (2)
  - CARDIO-RESPIRATORY ARREST [None]
  - COMPLETED SUICIDE [None]
